FAERS Safety Report 6126854-9 (Version None)
Quarter: 2009Q1

REPORT INFORMATION
  Report Type: 
  Country: None (occurrence: None)
  Receive Date: 20090320
  Receipt Date: 20090311
  Transmission Date: 20090719
  Serious: Yes (Hospitalization)
  Sender: FDA-Public Use
  Company Number: GR-GILEAD-E2B_00000311

PATIENT
  Age: 71 Year
  Sex: Female

DRUGS (1)
  1. AMBRISENTAN [Suspect]
     Indication: ATRIAL SEPTAL DEFECT
     Dosage: 5MG PER DAY
     Route: 048
     Dates: start: 20090202

REACTIONS (4)
  - ACUTE PULMONARY OEDEMA [None]
  - HYPERCAPNIA [None]
  - RESPIRATORY FAILURE [None]
  - VIRAL INFECTION [None]
